FAERS Safety Report 6193440-4 (Version None)
Quarter: 2009Q2

REPORT INFORMATION
  Report Type: 
  Country: None (occurrence: None)
  Receive Date: 20090514
  Receipt Date: 20090514
  Transmission Date: 20091009
  Serious: Yes (Life-Threatening, Other)
  Sender: FDA-Public Use
  Company Number: None

PATIENT
  Age: 56 Year
  Sex: Female
  Weight: 73.9363 kg

DRUGS (1)
  1. PARNATE [Suspect]
     Indication: BIPOLAR DISORDER

REACTIONS (7)
  - AGGRESSION [None]
  - ANGER [None]
  - INSOMNIA [None]
  - NERVOUSNESS [None]
  - SPOUSAL ABUSE [None]
  - SUICIDAL IDEATION [None]
  - VIOLENCE-RELATED SYMPTOM [None]
